FAERS Safety Report 5323876-2 (Version None)
Quarter: 2007Q2

REPORT INFORMATION
  Report Type: 
  Country: None (occurrence: None)
  Receive Date: 20070514
  Receipt Date: 20070504
  Transmission Date: 20071010
  Serious: Yes (Other)
  Sender: FDA-Public Use
  Company Number: DE-ASTRAZENECA-2007PK00723

PATIENT
  Age: 39 Year
  Sex: Female
  Weight: 67 kg

DRUGS (3)
  1. BUPIVACAINE [Suspect]
     Indication: CAESAREAN SECTION
     Route: 008
  2. LIDOCAINE [Suspect]
  3. GENERAL ANAESTHETIC [Suspect]

REACTIONS (3)
  - ANAESTHETIC COMPLICATION [None]
  - HYPOTENSION [None]
  - POST LUMBAR PUNCTURE SYNDROME [None]
